FAERS Safety Report 22056257 (Version 2)
Quarter: 2023Q1

REPORT INFORMATION
  Report Type: Spontaneous
  Country: US (occurrence: US)
  Receive Date: 20230302
  Receipt Date: 20230329
  Transmission Date: 20230417
  Serious: No
  Sender: FDA-Public Use
  Company Number: US-JNJFOC-20230248945

PATIENT
  Sex: Female

DRUGS (3)
  1. SPRAVATO [Suspect]
     Active Substance: ESKETAMINE
     Indication: Depression
     Dosage: TWICE A WEEK FOR FIRST MONTH
  2. SPRAVATO [Suspect]
     Active Substance: ESKETAMINE
  3. SPRAVATO [Suspect]
     Active Substance: ESKETAMINE
     Dosage: UP TO 18 MONTHS

REACTIONS (5)
  - Disorientation [Unknown]
  - Dysarthria [Unknown]
  - Dissociation [Unknown]
  - Device difficult to use [Unknown]
  - Drug ineffective [Unknown]
